FAERS Safety Report 6329985-3 (Version None)
Quarter: 2009Q3

REPORT INFORMATION
  Report Type: 
  Country: None (occurrence: None)
  Receive Date: 20090825
  Receipt Date: 20090811
  Transmission Date: 20100115
  Serious: Yes (Other)
  Sender: FDA-Public Use
  Company Number: 8049543

PATIENT
  Age: 13 Year
  Sex: Male

DRUGS (13)
  1. PREDNISOLONE [Suspect]
     Indication: HEART TRANSPLANT
  2. TACROLIMUS [Suspect]
     Indication: HEART TRANSPLANT
  3. TACROLIMUS [Suspect]
     Indication: IMMUNOSUPPRESSION
  4. CYCLOPHOSPHAMIDE [Suspect]
     Indication: CHEMOTHERAPY
  5. CYCLOPHOSPHAMIDE [Suspect]
     Indication: IMMUNOSUPPRESSION
  6. CYTARABINE [Suspect]
     Indication: CHEMOTHERAPY
  7. DEXRAZOXANE [Suspect]
     Indication: CHEMOTHERAPY
  8. DOXORUBICIN HCL [Suspect]
     Indication: CHEMOTHERAPY
  9. RITUXIMAB [Suspect]
     Indication: CHEMOTHERAPY
  10. THIOGUANINE [Suspect]
     Indication: CHEMOTHERAPY
  11. VINCRISTINE [Suspect]
     Indication: CHEMOTHERAPY
  12. METHOTREXATE SODIUM [Concomitant]
  13. CYCLOSPORINE [Concomitant]

REACTIONS (6)
  - BACTERIAL SEPSIS [None]
  - MUSCLE CONTRACTIONS INVOLUNTARY [None]
  - PNEUMOCYSTIS JIROVECI PNEUMONIA [None]
  - STAPHYLOCOCCAL INFECTION [None]
  - TIC [None]
  - TRANSPLANT [None]
